FAERS Safety Report 5165789-5 (Version None)
Quarter: 2006Q4

REPORT INFORMATION
  Report Type: 
  Country: None (occurrence: None)
  Receive Date: 20061128
  Receipt Date: 20061116
  Transmission Date: 20070319
  Serious: No
  Sender: FDA-Public Use
  Company Number: DE-2006-028764

PATIENT
  Age: 42 Year
  Sex: Female

DRUGS (1)
  1. MIRENA [Suspect]
     Dosage: 20 UG/DAY, CONT, INTRA-UTERINE
     Route: 015
     Dates: start: 20060101

REACTIONS (5)
  - ARRHYTHMIA [None]
  - EXTRASYSTOLES [None]
  - MALAISE [None]
  - MENOPAUSE [None]
  - TACHYCARDIA [None]
